FAERS Safety Report 5101956-4 (Version None)
Quarter: 2006Q3

REPORT INFORMATION
  Report Type: 
  Country: None (occurrence: None)
  Receive Date: 20060907
  Receipt Date: 20060822
  Transmission Date: 20061208
  Serious: Yes (Other)
  Sender: FDA-Public Use
  Company Number: 228932

PATIENT
  Age: 48 Year
  Sex: Female
  Weight: 106.6 kg

DRUGS (11)
  1. XOLAIR [Suspect]
     Indication: DRUG USE FOR UNKNOWN INDICATION
  2. PREDNISONE [Concomitant]
  3. PULMICORT [Concomitant]
  4. SPIRIVA [Concomitant]
  5. ZYFLO [Concomitant]
  6. NEXIUM [Concomitant]
  7. ALLEGRA [Concomitant]
  8. FLONASE [Concomitant]
  9. NORVASC [Concomitant]
  10. ZESTRIL [Concomitant]
  11. DEPAKOTE [Concomitant]

REACTIONS (6)
  - COUGH [None]
  - DYSPNOEA [None]
  - INCREASED TENDENCY TO BRUISE [None]
  - LARYNGEAL DISORDER [None]
  - SWELLING [None]
  - URTICARIA [None]
